FAERS Safety Report 5048626-9 (Version None)
Quarter: 2006Q3

REPORT INFORMATION
  Report Type: 
  Country: None (occurrence: None)
  Receive Date: 20060705
  Receipt Date: 20060614
  Transmission Date: 20061208
  Serious: Yes (Hospitalization)
  Sender: FDA-Public Use
  Company Number: CA200606003775

PATIENT
  Age: 61 Year
  Sex: Female

DRUGS (10)
  1. FORTEO [Suspect]
     Indication: OSTEOPOROSIS
     Dosage: 20 UG, OTHER
     Dates: start: 20060117, end: 20060527
  2. FORTEO PEN (FORTEO PEN) [Concomitant]
  3. ESOMEPRAZOLE (ESOMEPRAZOLE) [Concomitant]
  4. CLOPIDOGREL [Concomitant]
  5. RANITIDINE [Concomitant]
  6. DILTIAZEM HYDROCHLORIDE [Concomitant]
  7. NITROGLYCERIN [Concomitant]
  8. PROCHLORPERAZINE MALEATE [Concomitant]
  9. HOMATROPINE (HOMATROPINE) [Concomitant]
  10. PREDNISOLONE ACETATE [Concomitant]

REACTIONS (2)
  - FALL [None]
  - HIP FRACTURE [None]
